FAERS Safety Report 4932594-1 (Version None)
Quarter: 2006Q1

REPORT INFORMATION
  Report Type: 
  Country: None (occurrence: None)
  Receive Date: 20060301
  Receipt Date: 20060213
  Transmission Date: 20060701
  Serious: Yes (Life-Threatening)
  Sender: FDA-Public Use
  Company Number: 2005002401

PATIENT
  Age: 61 Year
  Sex: Male

DRUGS (1)
  1. TARCEVA [Suspect]
     Indication: RESPIRATORY DISORDER
     Dosage: 150 MG (QD), ORAL
     Route: 048
     Dates: start: 20050921, end: 20050926

REACTIONS (2)
  - CEREBROVASCULAR DISORDER [None]
  - CONGESTIVE CARDIOMYOPATHY [None]
